FAERS Safety Report 7902073-8 (Version None)
Quarter: 2011Q4

REPORT INFORMATION
  Report Type: 
  Country: None (occurrence: None)
  Receive Date: 20111108
  Receipt Date: 20111028
  Transmission Date: 20120403
  Serious: Yes (Life-Threatening)
  Sender: FDA-Public Use
  Company Number: US-BAYER-2011-060890

PATIENT
  Age: 40 Year
  Sex: Female

DRUGS (11)
  1. IMITREX [Concomitant]
     Dosage: UNK UNK, PRN
     Route: 048
     Dates: start: 20070301, end: 20080901
  2. PREDNISONE [Concomitant]
     Dosage: 20 MG, PRN
     Route: 048
  3. YASMIN [Suspect]
     Indication: CONTRACEPTION
     Dosage: UNK
     Route: 048
     Dates: start: 20040701, end: 20080801
  4. INDERAL [Concomitant]
     Dosage: UNK
     Dates: start: 20070801, end: 20081201
  5. ZANTAC [Concomitant]
     Dosage: 150
     Route: 048
  6. SINGULAIR [Concomitant]
     Dosage: 10 MG, QD
     Route: 048
  7. EPIPEN [Concomitant]
     Dosage: UNK UNK, PRN
  8. DROSPIRENONE AND ETHINYL ESTRADIOL [Suspect]
     Indication: CONTRACEPTION
     Dosage: UNK
     Route: 048
     Dates: start: 20080701
  9. ZOLOFT [Concomitant]
     Dosage: 150, QD
     Route: 048
     Dates: start: 20051101, end: 20081201
  10. DARVOCET [Concomitant]
  11. INHALER [Concomitant]
     Dosage: UNK UNK, PRN

REACTIONS (7)
  - ANXIETY [None]
  - CHOLECYSTITIS CHRONIC [None]
  - EMOTIONAL DISTRESS [None]
  - INJURY [None]
  - ANHEDONIA [None]
  - PAIN [None]
  - FEAR [None]
